FAERS Safety Report 6790639-0 (Version None)
Quarter: 2010Q2

REPORT INFORMATION
  Report Type: 
  Country: None (occurrence: None)
  Receive Date: 20100520
  Receipt Date: 20091123
  Transmission Date: 20101027
  Serious: Yes (Other)
  Sender: FDA-Public Use
  Company Number: 2009191515

PATIENT
  Age: 76 Year
  Sex: Female

DRUGS (5)
  1. PROVERA [Suspect]
     Indication: HORMONE REPLACEMENT THERAPY
     Dosage: 0.9 MG, ORAL
     Route: 048
     Dates: start: 19830101, end: 19991213
  2. PREMARIN [Suspect]
     Indication: HORMONE REPLACEMENT THERAPY
     Dosage: 0.625 MG
     Dates: start: 19830101, end: 19991213
  3. PREMPRO [Suspect]
     Indication: HORMONE REPLACEMENT THERAPY
     Dosage: 0.635/2.5MG
     Dates: start: 20001030, end: 20020530
  4. COREG [Concomitant]
  5. FOSAMAX [Concomitant]

REACTIONS (1)
  - BREAST CANCER FEMALE [None]
